FAERS Safety Report 12507579 (Version 1)
Quarter: 2016Q2

REPORT INFORMATION
  Report Type: Spontaneous
  Country: BR (occurrence: BR)
  Receive Date: 20160629
  Receipt Date: 20160629
  Transmission Date: 20160815
  Serious: Yes (Other)
  Sender: FDA-Public Use
  Company Number: PHHY2016BR087755

PATIENT
  Age: 51 Year
  Sex: Male

DRUGS (3)
  1. PAZOPANIB [Suspect]
     Active Substance: PAZOPANIB
     Indication: CLEAR CELL RENAL CELL CARCINOMA
     Dosage: 400 MG, QD (FOR 2 WEEKS)
     Route: 065
  2. ASPIRIN. [Concomitant]
     Active Substance: ASPIRIN
     Indication: PRODUCT USED FOR UNKNOWN INDICATION
     Route: 065
  3. PAZOPANIB [Suspect]
     Active Substance: PAZOPANIB
     Dosage: 800 MG, QD
     Route: 065

REACTIONS (11)
  - Collateral circulation [Unknown]
  - Peripheral artery occlusion [Unknown]
  - Metastases to lung [Unknown]
  - Fatigue [Unknown]
  - Hypoaesthesia [Unknown]
  - Mass [Unknown]
  - Arteriosclerosis [Unknown]
  - Hair colour changes [Unknown]
  - Pallor [Unknown]
  - Muscle spasms [Unknown]
  - Retroperitoneal mass [Unknown]

NARRATIVE: CASE EVENT DATE: 201403
